FAERS Safety Report 12450533 (Version 1)
Quarter: 2016Q2

REPORT INFORMATION
  Report Type: Spontaneous
  Country: US (occurrence: US)
  Receive Date: 20160609
  Receipt Date: 20160609
  Transmission Date: 20160815
  Serious: Yes (Death, Hospitalization)
  Sender: FDA-Public Use
  Company Number: US-SUN PHARMACEUTICAL INDUSTRIES LTD-2016US-117488

PATIENT
  Age: 44 Year
  Sex: Female

DRUGS (1)
  1. DULOXETINE. [Suspect]
     Active Substance: DULOXETINE
     Indication: PRODUCT USED FOR UNKNOWN INDICATION
     Dosage: UNK
     Route: 065

REACTIONS (6)
  - Torsade de pointes [Fatal]
  - Electrocardiogram QT prolonged [Fatal]
  - Ventricular fibrillation [Fatal]
  - Overdose [Fatal]
  - Brain death [Fatal]
  - Ventricular tachycardia [Fatal]
